FAERS Safety Report 8073023-1 (Version None)
Quarter: 2011Q4

REPORT INFORMATION
  Report Type: 
  Country: None (occurrence: None)
  Receive Date: 20111221
  Receipt Date: 20110223
  Transmission Date: 20120403
  Serious: Yes (Disabling)
  Sender: FDA-Public Use
  Company Number: PHHY2008US37146

PATIENT
  Age: 65 Year
  Sex: Female
  Weight: 55 kg

DRUGS (7)
  1. EXJADE [Suspect]
     Indication: IRON OVERLOAD
     Dosage: 500 MG, ORAL ; 500 MG, ORAL
     Route: 048
     Dates: start: 20080901
  2. EXJADE [Suspect]
     Indication: MYELODYSPLASTIC SYNDROME
     Dosage: 500 MG, ORAL ; 500 MG, ORAL
     Route: 048
     Dates: start: 20080901
  3. EXJADE [Suspect]
     Indication: IRON OVERLOAD
     Dosage: 500 MG, ORAL ; 500 MG, ORAL
     Route: 048
     Dates: start: 20100101, end: 20100601
  4. EXJADE [Suspect]
     Indication: MYELODYSPLASTIC SYNDROME
     Dosage: 500 MG, ORAL ; 500 MG, ORAL
     Route: 048
     Dates: start: 20100101, end: 20100601
  5. PREDNISONE TAB [Concomitant]
  6. ACTONEL [Concomitant]
  7. MULTIVITAMINS (ASCORBIC ACID, ERGOCALCIFEROL, FOLIC ACID, NICOTINAMIDE [Concomitant]

REACTIONS (2)
  - POLYP [None]
  - DIARRHOEA [None]
